FAERS Safety Report 18556043 (Version 1)
Quarter: 2020Q4

REPORT INFORMATION
  Report Type: Report from Study
  Country: None (occurrence: US)
  Receive Date: 20201127
  Receipt Date: 20201127
  Transmission Date: 20210114
  Serious: Yes (Other)
  Sender: FDA-Public Use
  Company Number: US-ABBVIE-20K-163-3660977-00

PATIENT
  Sex: Female

DRUGS (1)
  1. RINVOQ [Suspect]
     Active Substance: UPADACITINIB
     Indication: RHEUMATOID ARTHRITIS
     Route: 048

REACTIONS (4)
  - Rotator cuff repair [Recovering/Resolving]
  - Asthenia [Not Recovered/Not Resolved]
  - Muscle rupture [Recovering/Resolving]
  - Systemic lupus erythematosus [Not Recovered/Not Resolved]
